FAERS Safety Report 20728747 (Version 1)
Quarter: 2022Q2

REPORT INFORMATION
  Report Type: Spontaneous
  Country: US (occurrence: US)
  Receive Date: 20220420
  Receipt Date: 20220420
  Transmission Date: 20220721
  Serious: No
  Sender: FDA-Public Use
  Company Number: US-AUROBINDO-AUR-APL-2021-016238

PATIENT
  Sex: Male

DRUGS (1)
  1. ARMODAFINIL [Suspect]
     Active Substance: ARMODAFINIL
     Indication: Product used for unknown indication
     Dosage: 200 MILLIGRAM
     Route: 065

REACTIONS (6)
  - Paraesthesia [Unknown]
  - Ear discomfort [Unknown]
  - Insomnia [Unknown]
  - Hypoaesthesia eye [Unknown]
  - Pharyngeal hypoaesthesia [Unknown]
  - Drug ineffective [Unknown]
